FAERS Safety Report 14290773 (Version 2)
Quarter: 2018Q1

REPORT INFORMATION
  Report Type: Spontaneous
  Country: BR (occurrence: BR)
  Receive Date: 20171215
  Receipt Date: 20180103
  Transmission Date: 20180509
  Serious: Yes (Hospitalization, Other)
  Sender: FDA-Public Use
  Company Number: BR-BAYER-2017-239217

PATIENT
  Age: 26 Year
  Sex: Female

DRUGS (1)
  1. MIRENA [Suspect]
     Active Substance: LEVONORGESTREL
     Indication: ENDOMETRIOSIS
     Dosage: 20 MCG/24HR, CONT
     Route: 015
     Dates: start: 201606, end: 20171211

REACTIONS (11)
  - Abdominal pain [Recovering/Resolving]
  - Syncope [Recovering/Resolving]
  - Peritoneal haemorrhage [Recovering/Resolving]
  - Acute abdomen [Recovering/Resolving]
  - Malaise [Recovering/Resolving]
  - Haemorrhagic ovarian cyst [None]
  - Ovarian cyst ruptured [None]
  - Discomfort [Recovering/Resolving]
  - Off label use of device [None]
  - Pallor [Recovering/Resolving]
  - Product use in unapproved indication [None]

NARRATIVE: CASE EVENT DATE: 20171115
